FAERS Safety Report 5192988-9 (Version None)
Quarter: 2006Q4

REPORT INFORMATION
  Report Type: 
  Country: None (occurrence: None)
  Receive Date: 20061228
  Receipt Date: 20050718
  Transmission Date: 20070319
  Serious: No
  Sender: FDA-Public Use
  Company Number: US-GLAXOSMITHKLINE-A0567604A

PATIENT
  Age: 37 Year
  Sex: Female
  Weight: 95.5 kg

DRUGS (3)
  1. AVODART [Suspect]
  2. PRENATAL VITAMINS [Concomitant]
     Route: 048
  3. FOLIC ACID [Concomitant]
     Route: 048

REACTIONS (2)
  - NORMAL NEWBORN [None]
  - PREGNANCY INDUCED HYPERTENSION [None]
